FAERS Safety Report 4394773-4 (Version None)
Quarter: 2004Q3

REPORT INFORMATION
  Report Type: 
  Country: None (occurrence: None)
  Receive Date: 20040707
  Receipt Date: 20040625
  Transmission Date: 20050211
  Serious: Yes (Life-Threatening, Hospitalization, Disabling, Other)
  Sender: FDA-Public Use
  Company Number: GBR-2004-0001028

PATIENT
  Age: 80 Year
  Sex: Male

DRUGS (10)
  1. OXYCONTIN [Suspect]
     Indication: MUSCULOSKELETAL PAIN
     Dosage: 40 MG, DAILY, ORAL
     Route: 048
     Dates: start: 20040323, end: 20040405
  2. AMITRIPTYLINE HYDROCHLORIDE [Suspect]
     Indication: MUSCULOSKELETAL PAIN
     Dosage: 5 DROP, DAILY, ORAL
     Route: 048
     Dates: start: 20040323, end: 20040405
  3. VIOXX [Suspect]
     Indication: MUSCULOSKELETAL PAIN
     Dosage: ORAL
     Route: 048
     Dates: start: 20040323, end: 20040405
  4. ASPEGIC 1000 [Concomitant]
  5. FOSAMAX [Concomitant]
  6. DILTIAZEM HYDROCHLORIDE [Concomitant]
  7. TOPALGIC ^HOUDE^ [Concomitant]
  8. RIVOTRIL (CLONAZEPAM) [Concomitant]
  9. EQUANIL [Concomitant]
  10. URISPAS [Concomitant]

REACTIONS (7)
  - COMA [None]
  - CONVULSION [None]
  - DELIRIUM [None]
  - DISORIENTATION [None]
  - HALLUCINATION [None]
  - MENTAL DISORDER [None]
  - PARANOIA [None]
